FAERS Safety Report 24160166 (Version 1)
Quarter: 2024Q3

REPORT INFORMATION
  Report Type: Spontaneous
  Country: US (occurrence: None)
  Receive Date: 20240801
  Receipt Date: 20240801
  Transmission Date: 20241016
  Serious: No
  Sender: ASTRAZENECA
  Company Number: 2024A167117

PATIENT
  Sex: Male

DRUGS (2)
  1. ROSUVASTATIN [Interacting]
     Active Substance: ROSUVASTATIN\ROSUVASTATIN CALCIUM
     Route: 048
  2. VYNDAMAX [Interacting]
     Active Substance: TAFAMIDIS
     Dosage: 61.0MG UNKNOWN

REACTIONS (1)
  - Drug interaction [Unknown]
